FAERS Safety Report 5670235-9 (Version None)
Quarter: 2008Q1

REPORT INFORMATION
  Report Type: 
  Country: None (occurrence: None)
  Receive Date: 20080318
  Receipt Date: 20080306
  Transmission Date: 20080703
  Serious: Yes (Hospitalization)
  Sender: FDA-Public Use
  Company Number: GB-RANBAXY-2008RR-13594

PATIENT

DRUGS (1)
  1. ACETAMINOPHEN [Suspect]
     Dosage: 16-62 G
     Route: 048

REACTIONS (3)
  - ABSCESS DRAINAGE [None]
  - OVERDOSE [None]
  - RENAL FAILURE ACUTE [None]
